FAERS Safety Report 10620348 (Version 1)
Quarter: 2014Q4

REPORT INFORMATION
  Report Type: Spontaneous
  Country: US (occurrence: US)
  Receive Date: 20141202
  Receipt Date: 20141202
  Transmission Date: 20150529
  Serious: No
  Sender: FDA-Public Use
  Company Number: US-ELI_LILLY_AND_COMPANY-US201411004196

PATIENT
  Age: 26 Year
  Sex: Female
  Weight: 54.42 kg

DRUGS (2)
  1. HUMALOG [Suspect]
     Active Substance: INSULIN LISPRO
     Indication: PRODUCT USED FOR UNKNOWN INDICATION
     Route: 058
  2. NOVOLOG [Concomitant]
     Active Substance: INSULIN ASPART
     Route: 058

REACTIONS (3)
  - Feeling abnormal [Unknown]
  - Blood glucose increased [Recovered/Resolved]
  - Urine ketone body present [Unknown]

NARRATIVE: CASE EVENT DATE: 20141101
